FAERS Safety Report 8266494-9 (Version None)
Quarter: 2012Q2

REPORT INFORMATION
  Report Type: 
  Country: None (occurrence: None)
  Receive Date: 20120406
  Receipt Date: 20120328
  Transmission Date: 20120825
  Serious: Yes (Other)
  Sender: FDA-Public Use
  Company Number: US-ASTRAZENECA-2011SE69766

PATIENT
  Age: 60 Year
  Sex: Female
  Weight: 77.1 kg

DRUGS (25)
  1. SEROQUEL [Suspect]
     Route: 048
  2. VIVELLE-DOT [Concomitant]
  3. SEROQUEL [Suspect]
     Indication: DEPRESSION
     Route: 048
     Dates: start: 20090101
  4. SEROQUEL [Suspect]
     Route: 048
  5. SEROQUEL [Suspect]
     Route: 048
  6. LEXAPRO [Concomitant]
     Indication: DEPRESSION
  7. PERCOCET [Concomitant]
  8. SEROQUEL [Suspect]
     Route: 048
  9. SEROQUEL [Suspect]
     Route: 048
  10. SEROQUEL [Suspect]
     Route: 048
  11. SEROQUEL [Suspect]
     Indication: INSOMNIA
     Route: 048
     Dates: start: 20090101
  12. SEROQUEL [Suspect]
     Indication: EATING DISORDER
     Route: 048
     Dates: start: 20090101
  13. SEROQUEL [Suspect]
     Route: 048
  14. TRAZODONE HCL [Concomitant]
  15. SYNTHROID [Concomitant]
     Indication: THYROID DISORDER
  16. SEROQUEL [Suspect]
     Indication: SCHIZOID PERSONALITY DISORDER
     Route: 048
     Dates: start: 20090101
  17. SEROQUEL [Suspect]
     Route: 048
  18. SEROQUEL [Suspect]
     Route: 048
  19. SEROQUEL [Suspect]
     Indication: BRAIN INJURY
     Route: 048
     Dates: start: 20090101
  20. SEROQUEL [Suspect]
     Indication: BIPOLAR DISORDER
     Route: 048
     Dates: start: 20090101
  21. SEROQUEL [Suspect]
     Route: 048
  22. PROMETRIUM [Concomitant]
  23. SEROQUEL [Suspect]
     Route: 048
  24. SEROQUEL [Suspect]
     Route: 048
  25. NUVIGIL [Concomitant]

REACTIONS (7)
  - NIGHTMARE [None]
  - INTENTIONAL DRUG MISUSE [None]
  - HEARING IMPAIRED [None]
  - INSOMNIA [None]
  - WEIGHT DECREASED [None]
  - MALAISE [None]
  - BRAIN INJURY [None]
